FAERS Safety Report 11731272 (Version 1)
Quarter: 2015Q4

REPORT INFORMATION
  Report Type: Spontaneous
  Country: US (occurrence: US)
  Receive Date: 20151110
  Receipt Date: 20151110
  Transmission Date: 20160304
  Serious: No
  Sender: FDA-Public Use
  Company Number: US-ELI_LILLY_AND_COMPANY-US201202004688

PATIENT
  Age: 81 Year
  Sex: Female

DRUGS (1)
  1. FORTEO [Suspect]
     Active Substance: TERIPARATIDE
     Indication: OSTEOPOROSIS
     Dosage: 20 UG, QD
     Dates: start: 20120101

REACTIONS (6)
  - Hypersensitivity [Unknown]
  - Back pain [Unknown]
  - Abdominal pain [Unknown]
  - Dyspnoea [Unknown]
  - Constipation [Unknown]
  - Cough [Unknown]
